FAERS Safety Report 23088599 (Version 1)
Quarter: 2023Q4

REPORT INFORMATION
  Report Type: Spontaneous
  Country: US (occurrence: US)
  Receive Date: 20231020
  Receipt Date: 20231020
  Transmission Date: 20240110
  Serious: Yes (Life-Threatening, Hospitalization, Other)
  Sender: FDA-Public Use
  Company Number: US-MICRO LABS LIMITED-ML2023-05936

PATIENT
  Age: 14 Year
  Sex: Female

DRUGS (1)
  1. VERAPAMIL HYDROCHLORIDE [Suspect]
     Active Substance: VERAPAMIL HYDROCHLORIDE
     Indication: Product used for unknown indication
     Dosage: APPROXIMATELY 4080 MG OF VERAPAMIL

REACTIONS (6)
  - Hyperglycaemia [Unknown]
  - Respiratory rate increased [Unknown]
  - Drug level increased [Recovering/Resolving]
  - Hypotension [Unknown]
  - Atrioventricular block complete [Unknown]
  - Overdose [Unknown]
